FAERS Safety Report 6343636-3 (Version None)
Quarter: 2009Q3

REPORT INFORMATION
  Report Type: 
  Country: None (occurrence: None)
  Receive Date: 20090908
  Receipt Date: 20090828
  Transmission Date: 20100115
  Serious: Yes (Hospitalization)
  Sender: FDA-Public Use
  Company Number: BR-ASTRAZENECA-2009SE10960

PATIENT
  Age: 51 Year
  Sex: Female
  Weight: 79 kg

DRUGS (3)
  1. SYMBICORT [Suspect]
     Indication: ASTHMA
     Dosage: 160/4.5 MCG BID
     Route: 055
     Dates: start: 20070101, end: 20090701
  2. SYMBICORT [Suspect]
     Dosage: 320/9 MCG BID
     Route: 055
  3. PREDNISONE TAB [Concomitant]
     Indication: ASTHMA
     Dosage: BID
     Route: 048
     Dates: start: 20090825, end: 20090831

REACTIONS (1)
  - TONGUE OEDEMA [None]
